FAERS Safety Report 10068754 (Version 1)
Quarter: 2014Q2

REPORT INFORMATION
  Report Type: Spontaneous
  Country: CH (occurrence: CH)
  Receive Date: 20140409
  Receipt Date: 20140409
  Transmission Date: 20141212
  Serious: Yes (Other)
  Sender: FDA-Public Use
  Company Number: CH-TEVA-473033ISR

PATIENT
  Age: 28 Year
  Sex: Female

DRUGS (5)
  1. MEPHAQUIN [Suspect]
     Dosage: 250 MILLIGRAM DAILY;
     Route: 048
     Dates: start: 20140123, end: 20140123
  2. MEPHAQUIN [Suspect]
     Dosage: 250 MILLIGRAM DAILY;
     Route: 048
     Dates: start: 20140121, end: 20140121
  3. VIVOTIF [Concomitant]
     Route: 048
     Dates: start: 201401
  4. PRIORIX [Concomitant]
     Dosage: 1 DOSAGE FORMS DAILY;
     Route: 030
     Dates: start: 20131218, end: 20131218
  5. REVAVIX [Concomitant]
     Dosage: 1 DOSAGE FORMS DAILY;
     Route: 030
     Dates: start: 20131218, end: 20131218

REACTIONS (13)
  - Nausea [Recovering/Resolving]
  - Decreased appetite [Recovering/Resolving]
  - Nausea [Recovering/Resolving]
  - Weight decreased [Recovering/Resolving]
  - Dyspnoea [Recovering/Resolving]
  - Insomnia [Recovering/Resolving]
  - Limb discomfort [Recovering/Resolving]
  - Chest discomfort [Recovering/Resolving]
  - Abdominal tenderness [Unknown]
  - Tenderness [Unknown]
  - Abdominal tenderness [Unknown]
  - Sensory disturbance [Unknown]
  - Asthenia [Unknown]
